FAERS Safety Report 21192718 (Version 2)
Quarter: 2022Q3

REPORT INFORMATION
  Report Type: Report from Study
  Country: PH (occurrence: PH)
  Receive Date: 20220810
  Receipt Date: 20220822
  Transmission Date: 20221026
  Serious: Yes (Death)
  Sender: FDA-Public Use
  Company Number: PH-NOVARTISPH-NVSC2022PH179925

PATIENT
  Age: 25 Year
  Sex: Male

DRUGS (16)
  1. RUXOLITINIB [Suspect]
     Active Substance: RUXOLITINIB
     Indication: Myeloproliferative neoplasm
     Dosage: 5 MG, BID
     Route: 048
     Dates: start: 20220727
  2. CALCIUM CARBONATE [Suspect]
     Active Substance: CALCIUM CARBONATE
     Indication: Product used for unknown indication
     Dosage: 1 DOSAGE FORM, QD
     Route: 048
  3. CEFIXIME [Suspect]
     Active Substance: CEFIXIME
     Indication: Product used for unknown indication
     Dosage: 200 MG, BID (TAKE 1 TABLET TWICE A DAY UNTIL 19 JUL 2022)
     Route: 048
  4. LACTULOSE [Suspect]
     Active Substance: LACTULOSE
     Indication: Product used for unknown indication
     Dosage: UNK (DRINK 30CC BEFORE BEDTIME MAINTAIN INDEFINITELY UNTIL FOLLOW UP)
     Route: 048
  5. RIFAXIMIN [Suspect]
     Active Substance: RIFAXIMIN
     Indication: Product used for unknown indication
     Dosage: 200 MG (TAKE 2 TABLETS TWICE A DAY MAINTAIN INDEFINITELY UNTIL FOLLOW UP)
     Route: 048
  6. PROPRANOLOL [Suspect]
     Active Substance: PROPRANOLOL HYDROCHLORIDE
     Indication: Product used for unknown indication
     Dosage: 10 MG, TID
     Route: 048
  7. SPIRONOLACTONE [Suspect]
     Active Substance: SPIRONOLACTONE
     Indication: Product used for unknown indication
     Dosage: 100 MG, QD (TAKE 1 TABLET ONCE A DAY MAINTAIN INDEFINITELY UNTIL FOLLOW UP)
     Route: 048
  8. FUROSEMIDE [Suspect]
     Active Substance: FUROSEMIDE
     Indication: Product used for unknown indication
     Dosage: 40 MG, QD
     Route: 065
  9. METOCLOPRAMIDE [Suspect]
     Active Substance: METOCLOPRAMIDE
     Indication: Nausea
     Dosage: 10 MG (TAKE 1 TABLET EVERY 8 HRS AS NEEDED FOR NAUSEA AND VOMITING)
     Route: 048
  10. METOCLOPRAMIDE [Suspect]
     Active Substance: METOCLOPRAMIDE
     Indication: Vomiting
  11. OMEPRAZOLE [Suspect]
     Active Substance: OMEPRAZOLE
     Indication: Product used for unknown indication
     Dosage: 40 MG (TAKE 1 TABLET ONCE A DAY PREBREAKFAST MAINTAIN INDEFINITELY UNTIL FOLLOW UP)
     Route: 048
  12. TRAMADOL [Suspect]
     Active Substance: TRAMADOL
     Indication: Pain
     Dosage: 50 MG (TAKE 1 TABLET EVEY 6 HRS AS NEEDED FOR PAIN MAINTAIN INDEFINITELY UNTIL FOLLOW UP)
     Route: 048
  13. ENSURE [Concomitant]
     Active Substance: AMINO ACIDS\DEXTROSE\ELECTROLYTES NOS\SOYBEAN OIL\VITAMINS
     Indication: Product used for unknown indication
     Dosage: UNK (3 SCOOPS OF ENSURE AND 1 SCOOP OF BENEPROTEIN IN HALF GLASS OF WATER)
     Route: 065
  14. DIETARY SUPPLEMENT [Concomitant]
     Active Substance: DIETARY SUPPLEMENT
     Indication: Product used for unknown indication
     Dosage: UNK (3 SCOOPS OF ENSURE AND 1 SCOOP OF BENEPROTEIN IN HALF GLASS OF WATER)
     Route: 065
  15. AMINO ACIDS, SOURCE UNSPECIFIED [Concomitant]
     Active Substance: AMINO ACIDS, SOURCE UNSPECIFIED
     Indication: Product used for unknown indication
     Dosage: UNK (TAKE 1 SACHET BEFORE BEDTIME MAINTAIN INDEFINITELY UNTIL FOLLOW UP)
     Route: 065
  16. VITAMIN D [Concomitant]
     Active Substance: VITAMIN D NOS
     Indication: Product used for unknown indication
     Dosage: 25000 MG (TAB OR CAP TAKE 1 AMPULE TWICE A WEEK (WED AND SAT) FOR 4 WEEKS)
     Route: 065

REACTIONS (1)
  - Hepatic failure [Fatal]
